FAERS Safety Report 8293570-7 (Version None)
Quarter: 2012Q2

REPORT INFORMATION
  Report Type: 
  Country: None (occurrence: None)
  Receive Date: 20120418
  Receipt Date: 20120409
  Transmission Date: 20120825
  Serious: No
  Sender: FDA-Public Use
  Company Number: US-BIOGENIDEC-2012BI012036

PATIENT
  Sex: Female

DRUGS (2)
  1. AVONEX [Suspect]
     Indication: MULTIPLE SCLEROSIS
     Route: 030
     Dates: start: 20091229
  2. AVONEX [Suspect]
     Route: 030
     Dates: start: 20120101

REACTIONS (6)
  - SPEECH DISORDER [None]
  - MOBILITY DECREASED [None]
  - GAIT DISTURBANCE [None]
  - GENERAL SYMPTOM [None]
  - DIZZINESS [None]
  - COGNITIVE DISORDER [None]
